FAERS Safety Report 10449144 (Version 2)
Quarter: 2014Q4

REPORT INFORMATION
  Report Type: Spontaneous
  Country: JP (occurrence: JP)
  Receive Date: 20140912
  Receipt Date: 20141005
  Transmission Date: 20150528
  Serious: Yes (Death)
  Sender: FDA-Public Use
  Company Number: JP-BRISTOL-MYERS SQUIBB COMPANY-21381124

PATIENT
  Age: 52 Year
  Sex: Male
  Weight: 83.5 kg

DRUGS (2)
  1. ONGLYZA [Suspect]
     Active Substance: SAXAGLIPTIN HYDROCHLORIDE
     Indication: DIABETES MELLITUS
     Route: 048
     Dates: start: 20140507
  2. INSULIN [Suspect]
     Active Substance: INSULIN NOS
     Dosage: TRESIBA (INSULIN RECOMBINATION AND INSULIN DEGLUDEC)
     Route: 058
     Dates: start: 20140129

REACTIONS (1)
  - Cardio-respiratory arrest [Fatal]

NARRATIVE: CASE EVENT DATE: 20140830
